FAERS Safety Report 9325446 (Version 2)
Quarter: 2013Q2

REPORT INFORMATION
  Report Type: Report from Study
  Country: GB (occurrence: GB)
  Receive Date: 20130604
  Receipt Date: 20130626
  Transmission Date: 20140414
  Serious: Yes (Death, Hospitalization)
  Sender: FDA-Public Use
  Company Number: GB-ROCHE-1230036

PATIENT
  Sex: Female

DRUGS (16)
  1. RITUXIMAB [Suspect]
     Indication: RHEUMATOID ARTHRITIS
     Route: 065
     Dates: start: 200608
  2. RITUXIMAB [Suspect]
     Route: 065
     Dates: start: 20080807
  3. PREDNISOLONE [Concomitant]
  4. THYROXINE [Concomitant]
  5. VALSARTAN [Concomitant]
  6. DILTIAZEM [Concomitant]
     Route: 065
  7. MYCOPHENOLATE MOFETIL [Concomitant]
     Route: 065
  8. PREGABALIN [Concomitant]
     Route: 065
  9. CALCICHEW D3 FORTE [Concomitant]
     Dosage: ONE TABLET TWCIE A DAY
     Route: 065
  10. ZOLEDRONATE [Concomitant]
     Dosage: ANNUAL INFUSION
     Route: 065
  11. BUPRENORPHINE [Concomitant]
  12. CO-CODAMOL [Concomitant]
  13. TRIMETHOPRIM [Concomitant]
  14. DOXYCYCLINE [Concomitant]
  15. OMEPRAZOLE [Concomitant]
  16. FUROSEMIDE [Concomitant]

REACTIONS (11)
  - Urinary tract infection [Unknown]
  - Clostridium difficile infection [Unknown]
  - Hyponatraemia [Unknown]
  - Upper respiratory tract infection [Unknown]
  - Lobar pneumonia [Unknown]
  - Cardiac failure congestive [Unknown]
  - Atrial fibrillation [Unknown]
  - Nausea [Unknown]
  - Renal impairment [Unknown]
  - Pneumonia [Fatal]
  - Pulmonary fibrosis [Fatal]
